FAERS Safety Report 11841192 (Version 1)
Quarter: 2015Q4

REPORT INFORMATION
  Report Type: Spontaneous
  Country: BR (occurrence: BR)
  Receive Date: 20151216
  Receipt Date: 20151216
  Transmission Date: 20160305
  Serious: Yes (Other)
  Sender: FDA-Public Use
  Company Number: BR-ELI_LILLY_AND_COMPANY-BR201512001731

PATIENT
  Sex: Female

DRUGS (6)
  1. GABAPENTINA [Concomitant]
     Active Substance: GABAPENTIN
     Dosage: UNK, UNKNOWN
     Route: 065
  2. HUMULIN N [Suspect]
     Active Substance: INSULIN HUMAN
     Dosage: 6 IU, UNKNOWN
     Route: 058
  3. LYRICA [Concomitant]
     Active Substance: PREGABALIN
     Dosage: UNK, UNKNOWN
     Route: 065
  4. HUMULIN N [Suspect]
     Active Substance: INSULIN HUMAN
     Indication: BLOOD GLUCOSE ABNORMAL
     Dosage: UNK UNK, UNKNOWN
     Route: 058
     Dates: start: 2010
  5. JANUMET [Concomitant]
     Active Substance: METFORMIN HYDROCHLORIDE\SITAGLIPTIN PHOSPHATE
     Dosage: UNK, UNKNOWN
     Route: 065
  6. HUMULIN N [Suspect]
     Active Substance: INSULIN HUMAN
     Dosage: 100 IU, BID
     Route: 058

REACTIONS (12)
  - Blood glucose increased [Unknown]
  - Diabetic neuropathy [Unknown]
  - Weight decreased [Unknown]
  - Neck pain [Unknown]
  - Pigmentation disorder [Unknown]
  - Hyperhidrosis [Unknown]
  - Weight increased [Unknown]
  - Carpal tunnel syndrome [Unknown]
  - Renal injury [Unknown]
  - Tenosynovitis stenosans [Unknown]
  - Pancreatic injury [Unknown]
  - Feeling abnormal [Unknown]
